FAERS Safety Report 17861411 (Version 1)
Quarter: 2020Q2

REPORT INFORMATION
  Report Type: Spontaneous
  Country: US (occurrence: US)
  Receive Date: 20200604
  Receipt Date: 20200604
  Transmission Date: 20200714
  Serious: Yes (Other)
  Sender: FDA-Public Use
  Company Number: US-CORDEN PHARMA LATINA S.P.A.-US-2020COR000009

PATIENT

DRUGS (5)
  1. CYCLOPHOSPHAMIDE. [Suspect]
     Active Substance: CYCLOPHOSPHAMIDE
     Indication: ATYPICAL TERATOID/RHABDOID TUMOUR OF CNS
     Dosage: MAX DOSE 60MG/KG (1.8G/M2), TWO 21-DAY CYCLES ON CONSECUTIVE DAYS A, B POST METHOTREXATE CLEARANCE
     Route: 065
  2. ETOPOSIDE. [Suspect]
     Active Substance: ETOPOSIDE
     Indication: ATYPICAL TERATOID/RHABDOID TUMOUR OF CNS
     Dosage: MAX DOSE 2.5MG/KG (75MG/M2), TWO 21-DAY CYCLES, CONSECUTIVE DAYS A, B, C POST METHOTREXATE CLEARANCE
     Route: 065
  3. CISPLATIN. [Suspect]
     Active Substance: CISPLATIN
     Indication: ATYPICAL TERATOID/RHABDOID TUMOUR OF CNS
     Dosage: MAX DOSE 3.5MG/KG (105MG/M2), TWO 21-DAY CYCLES, CONSECUTIVE DAY C POST METHOTREXATE CLEARANCE
     Route: 065
  4. METHOTREXATE. [Suspect]
     Active Substance: METHOTREXATE
     Indication: ATYPICAL TERATOID/RHABDOID TUMOUR OF CNS
     Dosage: MAX DOSE 8G/M2 (20G), TWO 21-DAY CYCLES, DAY 1
     Route: 065
  5. VINCRISTINE [Suspect]
     Active Substance: VINCRISTINE
     Indication: ATYPICAL TERATOID/RHABDOID TUMOUR OF CNS
     Dosage: MAX DOSE 0.05MG/KG (1.5MG/M2), TWO 21-DAY CYCLES, DAYS 1, 8, 15
     Route: 065

REACTIONS (1)
  - Ototoxicity [Unknown]
